FAERS Safety Report 15918939 (Version 4)
Quarter: 2020Q1

REPORT INFORMATION
  Report Type: Spontaneous
  Country: CA (occurrence: CA)
  Receive Date: 20190205
  Receipt Date: 20200228
  Transmission Date: 20200409
  Serious: Yes (Hospitalization, Other)
  Sender: FDA-Public Use
  Company Number: CA-PFIZER INC-2019048069

PATIENT
  Age: 18 Year
  Sex: Male

DRUGS (9)
  1. METHYLPREDNISOLONE SODIUM SUCCINATE. [Suspect]
     Active Substance: METHYLPREDNISOLONE SODIUM SUCCINATE
     Indication: CROHN^S DISEASE
     Dosage: 40 MG IV DAILY FOR 2 DAYS, THEN 30 MG IV DAILY FOR 7 DAYS
     Route: 042
  2. INFLECTRA [Concomitant]
     Active Substance: INFLIXIMAB-DYYB
     Dosage: 350 MG, EVERY 8 WEEKS
     Route: 042
     Dates: start: 20191231
  3. DALTEPARIN [Concomitant]
     Active Substance: DALTEPARIN
     Dosage: 5000 IU, 0.2 ML
     Route: 058
     Dates: start: 20190122
  4. IBUPROFEN. [Suspect]
     Active Substance: IBUPROFEN
     Dosage: 200 MG, UNK
  5. ONDANSETRON [Concomitant]
     Active Substance: ONDANSETRON
     Dosage: 4 MG, UNK
  6. INFLECTRA [Concomitant]
     Active Substance: INFLIXIMAB-DYYB
     Dosage: 350 MG, EVERY 8 WEEKS
     Route: 042
     Dates: start: 20190211
  7. DIMENHYDRINATE. [Concomitant]
     Active Substance: DIMENHYDRINATE
     Dosage: 50 MG, UNK
  8. INFLECTRA [Concomitant]
     Active Substance: INFLIXIMAB-DYYB
     Indication: CROHN^S DISEASE
     Dosage: 350 MG, EVERY 8 WEEKS
     Route: 042
     Dates: start: 20190128
  9. ACETAMINOPHEN. [Concomitant]
     Active Substance: ACETAMINOPHEN
     Dosage: 325 MG, UNK

REACTIONS (27)
  - Abscess intestinal [Unknown]
  - Abdominal abscess [Unknown]
  - Decreased appetite [Unknown]
  - Tachycardia [Unknown]
  - Cough [Unknown]
  - Crohn^s disease [Unknown]
  - White blood cell count increased [Unknown]
  - Neutrophilia [Unknown]
  - Nausea [Unknown]
  - Pyrexia [Unknown]
  - Bowel movement irregularity [Unknown]
  - Diarrhoea [Unknown]
  - Oropharyngeal pain [Unknown]
  - Fistula [Unknown]
  - Fatigue [Unknown]
  - Sepsis [Unknown]
  - Cellulitis [Unknown]
  - Bladder disorder [Unknown]
  - Inflammatory bowel disease [Unknown]
  - Weight decreased [Unknown]
  - Vomiting [Unknown]
  - Gastrointestinal disorder [Unknown]
  - Skin disorder [Recovered/Resolved]
  - Constipation [Recovered/Resolved]
  - Abdominal pain [Recovered/Resolved]
  - Chills [Unknown]
  - Rash [Recovered/Resolved]

NARRATIVE: CASE EVENT DATE: 20190118
